FAERS Safety Report 8011664-8 (Version None)
Quarter: 2011Q4

REPORT INFORMATION
  Report Type: 
  Country: None (occurrence: None)
  Receive Date: 20111228
  Receipt Date: 20111226
  Transmission Date: 20120403
  Serious: Yes (Death)
  Sender: FDA-Public Use
  Company Number: JP-BAYER-2011-107793

PATIENT
  Age: 74 Year
  Sex: Male
  Weight: 42 kg

DRUGS (14)
  1. AMLODIPINE [Concomitant]
     Dosage: DAILY DOSE 5 MG
     Route: 048
     Dates: start: 20111102
  2. NEXAVAR [Suspect]
     Indication: HEPATIC NEOPLASM MALIGNANT
     Dosage: 400 MG, QD
     Route: 048
     Dates: start: 20111024, end: 20111106
  3. MARZULENE [Concomitant]
     Dosage: DAILY DOSE 1.5 G
     Route: 048
     Dates: start: 20111102
  4. ENALAPRIL MALEATE [Concomitant]
     Dosage: DAILY DOSE 5 MG
     Route: 048
     Dates: start: 20111102
  5. COLCHICINE [Concomitant]
     Dosage: DAILY DOSE 2 MG
     Route: 048
     Dates: start: 20111025
  6. SIMVASTATIN [Concomitant]
     Indication: HYPERTENSION
     Dosage: DAILY DOSE 5 MG
     Route: 048
     Dates: start: 20111102
  7. BERIZYM [ENZYMES NOS] [Concomitant]
     Dosage: DAILY DOSE .7 G
     Route: 048
     Dates: start: 20111102
  8. TRICHLORMETHIAZIDE [Concomitant]
     Dosage: DAILY DOSE 4 MG
     Route: 048
     Dates: start: 20111102
  9. LANSOPRAZOLE [Concomitant]
     Dosage: DAILY DOSE 15 MG
     Route: 048
     Dates: start: 20111105
  10. URSO 250 [Concomitant]
     Indication: HEPATIC FUNCTION ABNORMAL
     Dosage: DAILY DOSE 600 MG
     Route: 048
     Dates: start: 20111102
  11. PROLMON [Concomitant]
     Dosage: DAILY DOSE 60 MG
     Route: 048
     Dates: start: 20111102
  12. LACTULOSE [Concomitant]
     Dosage: DAILY DOSE 100 ML
     Route: 048
     Dates: start: 20111107
  13. ALLOPURINOL [Concomitant]
     Indication: GOUT
     Dosage: DAILY DOSE 300 MG
     Route: 048
     Dates: start: 20111025
  14. MIYA BM [Concomitant]
     Indication: GASTRITIS
     Dosage: DAILY DOSE 3 G
     Route: 048
     Dates: start: 20111029

REACTIONS (2)
  - DIARRHOEA [None]
  - RENAL FAILURE [None]
